FAERS Safety Report 4880809-0 (Version None)
Quarter: 2006Q1

REPORT INFORMATION
  Report Type: 
  Country: None (occurrence: None)
  Receive Date: 20060111
  Receipt Date: 20051028
  Transmission Date: 20060701
  Serious: No
  Sender: FDA-Public Use
  Company Number: 2005S1000128

PATIENT
  Age: 58 Year
  Weight: 158.9 kg

DRUGS (22)
  1. CUBICIN [Suspect]
     Indication: BACILLUS INFECTION
     Dosage: 400 MG;Q24H;IV
     Route: 042
     Dates: start: 20050208, end: 20050227
  2. CUBICIN [Suspect]
     Indication: DIABETIC FOOT INFECTION
     Dosage: 400 MG;Q24H;IV
     Route: 042
     Dates: start: 20050208, end: 20050227
  3. CUBICIN [Suspect]
     Indication: ENTEROCOCCAL INFECTION
     Dosage: 400 MG;Q24H;IV
     Route: 042
     Dates: start: 20050208, end: 20050227
  4. CUBICIN [Suspect]
     Indication: OSTEOMYELITIS
     Dosage: 400 MG;Q24H;IV
     Route: 042
     Dates: start: 20050208, end: 20050227
  5. CUBICIN [Suspect]
     Indication: PSEUDOMONAS INFECTION
     Dosage: 400 MG;Q24H;IV
     Route: 042
     Dates: start: 20050208, end: 20050227
  6. GLUCOPHAGE XR [Concomitant]
  7. LANTUS [Concomitant]
  8. HUMALOG [Concomitant]
  9. ACCUPRIL [Concomitant]
  10. LASIX [Concomitant]
  11. ASPIRIN [Concomitant]
  12. ZOCOR [Concomitant]
  13. LEVOTHYROXINE SODIUM [Concomitant]
  14. INOSITOL [Concomitant]
  15. ZOSYN [Concomitant]
  16. DIFLUCAN [Concomitant]
  17. FLAGYL [Concomitant]
  18. ZYVOX [Concomitant]
  19. TOBRAMYCIN [Concomitant]
  20. CIPROFLOXACIN HCL [Concomitant]
  21. MULTI-VITAMIN [Concomitant]
  22. VITAMIN B COMPLEX CAP [Concomitant]

REACTIONS (12)
  - BACK PAIN [None]
  - BLOOD CREATINE PHOSPHOKINASE INCREASED [None]
  - CHILLS [None]
  - CHOLELITHIASIS [None]
  - DYSSTASIA [None]
  - HYPERHIDROSIS [None]
  - HYPOTENSION [None]
  - MYALGIA [None]
  - PYREXIA [None]
  - RENAL FAILURE ACUTE [None]
  - TACHYCARDIA [None]
  - VOMITING [None]
